APPROVED DRUG PRODUCT: FLUTICASONE PROPIONATE
Active Ingredient: FLUTICASONE PROPIONATE
Strength: 0.05MG/SPRAY
Dosage Form/Route: SPRAY, METERED;NASAL
Application: A077570 | Product #001
Applicant: HIKMA PHARMACEUTICALS USA INC
Approved: Jan 16, 2008 | RLD: No | RS: No | Type: DISCN